FAERS Safety Report 9962102 (Version 1)
Quarter: 2014Q1

REPORT INFORMATION
  Report Type: Report from Study
  Country: US (occurrence: US)
  Receive Date: 20140305
  Receipt Date: 20140305
  Transmission Date: 20141002
  Serious: No
  Sender: FDA-Public Use
  Company Number: US-ABBVIE-13P-163-1115753-00

PATIENT
  Age: 27 Year
  Sex: Male

DRUGS (2)
  1. HUMIRA [Suspect]
     Indication: CROHN^S DISEASE
     Route: 058
     Dates: start: 20130407
  2. PREDNISONE [Concomitant]
     Indication: INFLAMMATION

REACTIONS (2)
  - Drug ineffective [Recovering/Resolving]
  - Injection site bruising [Recovered/Resolved]
